FAERS Safety Report 8587238-7 (Version None)
Quarter: 2012Q3

REPORT INFORMATION
  Report Type: 
  Country: None (occurrence: None)
  Receive Date: 20120810
  Receipt Date: 20110819
  Transmission Date: 20120928
  Serious: No
  Sender: FDA-Public Use
  Company Number: US-ASTRAZENECA-2011SE50379

PATIENT
  Sex: Female

DRUGS (3)
  1. AROMASIN [Suspect]
     Indication: BREAST CANCER
  2. ARIMIDEX [Suspect]
     Indication: BREAST CANCER
     Route: 048
  3. NOLVADEX [Suspect]
     Indication: BREAST CANCER
     Route: 048

REACTIONS (10)
  - DRY EYE [None]
  - CONJUNCTIVITIS [None]
  - RHEUMATOID ARTHRITIS [None]
  - WEIGHT INCREASED [None]
  - STOMATITIS [None]
  - CHAPPED LIPS [None]
  - NIGHT SWEATS [None]
  - HOT FLUSH [None]
  - FIBROMYALGIA [None]
  - SYSTEMIC LUPUS ERYTHEMATOSUS [None]
